FAERS Safety Report 7674885-X (Version None)
Quarter: 2011Q3

REPORT INFORMATION
  Report Type: 
  Country: None (occurrence: None)
  Receive Date: 20110810
  Receipt Date: 20110727
  Transmission Date: 20111222
  Serious: Yes (Other)
  Sender: FDA-Public Use
  Company Number: DE-CELGENEUS-062-21880-11073093

PATIENT
  Age: 58 Year
  Sex: Male

DRUGS (2)
  1. REVLIMID [Suspect]
     Dosage: 25 MILLIGRAM
     Route: 048
  2. CORTISONE ACETATE [Concomitant]
     Dosage: 80 MILLIGRAM
     Route: 065

REACTIONS (2)
  - HAEMATOTOXICITY [None]
  - MULTIPLE SCLEROSIS RELAPSE [None]
